FAERS Safety Report 9031738 (Version 2)
Quarter: 2013Q1

REPORT INFORMATION
  Report Type: Spontaneous
  Country: JP (occurrence: JP)
  Receive Date: 20130124
  Receipt Date: 20130219
  Transmission Date: 20140127
  Serious: Yes (Life-Threatening, Hospitalization)
  Sender: FDA-Public Use
  Company Number: JP-PFIZER INC-2013018977

PATIENT
  Age: 41 Year
  Sex: Male

DRUGS (1)
  1. NORPACE [Suspect]
     Indication: ATRIAL FIBRILLATION
     Dosage: UNK
     Route: 048

REACTIONS (2)
  - Atrial flutter [Recovered/Resolved]
  - Shock [Recovered/Resolved]
